FAERS Safety Report 20047618 (Version 2)
Quarter: 2021Q4

REPORT INFORMATION
  Report Type: Spontaneous
  Country: IN (occurrence: IN)
  Receive Date: 20211109
  Receipt Date: 20211125
  Transmission Date: 20220303
  Serious: Yes (Life-Threatening)
  Sender: FDA-Public Use
  Company Number: IN-TORRENT-00002944

PATIENT
  Age: 39 Year
  Sex: Male

DRUGS (26)
  1. ESOMEPRAZOLE [Suspect]
     Active Substance: ESOMEPRAZOLE
     Indication: Product used for unknown indication
     Dosage: BD
     Route: 042
     Dates: end: 202110
  2. Acamptas 333 [Concomitant]
     Indication: Product used for unknown indication
     Dosage: 1-1-1
  3. ALBUMIN HUMAN [Concomitant]
     Active Substance: ALBUMIN HUMAN
     Indication: Product used for unknown indication
     Dosage: OVER 8 HOURS
     Route: 042
  4. Anxozeal 15 [Concomitant]
     Indication: Product used for unknown indication
     Dosage: 1-0-1
  5. DEXTROSE [Concomitant]
     Active Substance: DEXTROSE
     Indication: Product used for unknown indication
     Route: 042
  6. SPIRONOLACTONE\TORSEMIDE [Concomitant]
     Active Substance: SPIRONOLACTONE\TORSEMIDE
     Indication: Product used for unknown indication
     Dosage: 10/50
  7. ONDANSETRON HYDROCHLORIDE [Concomitant]
     Active Substance: ONDANSETRON HYDROCHLORIDE
     Indication: Product used for unknown indication
     Route: 042
  8. Feliz S 10 [Concomitant]
     Indication: Product used for unknown indication
     Dosage: 0-0-1
  9. Lamino-GI Plus [Concomitant]
     Indication: Product used for unknown indication
     Dosage: WITH 300 ML MILK
  10. LOOZ [Concomitant]
     Indication: Product used for unknown indication
     Dosage: 30 ML BD
  11. Lopez [Concomitant]
     Indication: Product used for unknown indication
     Dosage: 1/2-1/2-0
  12. Metoclopromide hydrochloride [Concomitant]
     Indication: Product used for unknown indication
     Dosage: UNKNOWN
  13. NEOMOL [Concomitant]
     Indication: Product used for unknown indication
     Route: 042
  14. Optineuron [Concomitant]
     Indication: Product used for unknown indication
     Dosage: 1-1-1
  15. PALUDRINE [Concomitant]
     Active Substance: PROGUANIL HYDROCHLORIDE
     Indication: Product used for unknown indication
  16. Pipzo+NS [Concomitant]
     Indication: Product used for unknown indication
     Dosage: 4.5 G+100 TDS
     Route: 042
  17. Rifagut 550 [Concomitant]
     Indication: Product used for unknown indication
     Dosage: 1-0-1
     Route: 065
  18. Udiliv 300 [Concomitant]
     Indication: Product used for unknown indication
     Dosage: 1-0-1
  19. URSOCOL [Concomitant]
     Indication: Product used for unknown indication
     Dosage: 1-0-1
     Route: 065
  20. lactihep [Concomitant]
     Indication: Product used for unknown indication
     Dosage: 30 ML (1-0-1)
     Route: 065
  21. aladrine [Concomitant]
     Indication: Product used for unknown indication
     Dosage: 3-2-3
     Route: 065
  22. TRENTAL [Concomitant]
     Active Substance: PENTOXIFYLLINE
     Indication: Product used for unknown indication
     Dosage: 1-1-1
     Route: 065
  23. DUPHALAC [Concomitant]
     Active Substance: LACTULOSE
     Indication: Product used for unknown indication
     Dosage: UNKNOWN
     Route: 065
  24. RAZO [Concomitant]
     Indication: Product used for unknown indication
     Dosage: BD
     Route: 042
  25. MEROPENEM [Concomitant]
     Active Substance: MEROPENEM
     Indication: Product used for unknown indication
     Dosage: TID FOR 10 DAYS
     Route: 042
  26. Dolo [Concomitant]
     Indication: Product used for unknown indication
     Dosage: SOS
     Route: 065

REACTIONS (1)
  - Hypoglycaemia [Recovered/Resolved]

NARRATIVE: CASE EVENT DATE: 20211019
